FAERS Safety Report 9060459 (Version 1)
Quarter: 2013Q1

REPORT INFORMATION
  Report Type: Spontaneous
  Country: JP (occurrence: JP)
  Receive Date: 20130212
  Receipt Date: 20130212
  Transmission Date: 20140127
  Serious: Yes (Other)
  Sender: FDA-Public Use
  Company Number: JP-BAYER-2013-018343

PATIENT
  Sex: Male
  Weight: 1.07 kg

DRUGS (15)
  1. BAYASPIRIN [Suspect]
     Dosage: LOW DOSE
     Route: 064
  2. HEPARIN [Suspect]
     Dosage: LOW DOSE
     Route: 064
  3. FUROSEMIDE [Concomitant]
     Route: 064
  4. SPIRONOLACTONE [Concomitant]
     Route: 064
  5. HYDROCHLOROTHIAZIDE [Concomitant]
     Route: 064
  6. HYDROCHLOROTHIAZIDE [Concomitant]
     Route: 064
  7. PILSICAINIDE HYDROCHLORIDE [Concomitant]
     Route: 064
  8. WARFARIN POTASSIUM [Concomitant]
     Route: 064
  9. DIGOXIN [Concomitant]
     Route: 064
  10. ANESTHESIA [Concomitant]
     Route: 064
  11. DIURETICS [Concomitant]
     Route: 064
  12. DIURETICS [Concomitant]
     Route: 064
  13. B-STIMULANT [Concomitant]
     Route: 064
  14. POTASSIUM [Concomitant]
     Route: 064
  15. DANAPAROID SODIUM [Concomitant]
     Route: 064

REACTIONS (3)
  - Low birth weight baby [None]
  - Premature baby [None]
  - Exposure during pregnancy [None]
